FAERS Safety Report 10638112 (Version 4)
Quarter: 2015Q1

REPORT INFORMATION
  Report Type: Spontaneous
  Country: JP (occurrence: JP)
  Receive Date: 20141208
  Receipt Date: 20150122
  Transmission Date: 20150720
  Serious: Yes (Death, Other)
  Sender: FDA-Public Use
  Company Number: JP-PFIZER INC-2014333106

PATIENT
  Age: 56 Year
  Sex: Male

DRUGS (8)
  1. OXINORM [Concomitant]
     Active Substance: OXYCODONE HYDROCHLORIDE
     Dosage: 20 MG, UNK
     Route: 048
     Dates: start: 20141104, end: 20141129
  2. TAPENTA [Concomitant]
     Active Substance: TAPENTADOL HYDROCHLORIDE
     Dosage: 50 MG, 2X/DAY
     Route: 048
     Dates: start: 20141124, end: 20141203
  3. OXYFAST [Concomitant]
     Active Substance: OXYCODONE
     Dosage: 125 MG, DAILY
     Route: 042
     Dates: start: 20141104, end: 20141118
  4. LYRICA [Suspect]
     Active Substance: PREGABALIN
     Indication: CANCER PAIN
     Dosage: 75 MG, 2X/DAY
     Route: 048
     Dates: start: 20141110, end: 20141112
  5. LYRICA [Suspect]
     Active Substance: PREGABALIN
     Dosage: 150 MG, 2X/DAY
     Route: 048
     Dates: start: 20141113, end: 20141126
  6. TAPENTA [Concomitant]
     Active Substance: TAPENTADOL HYDROCHLORIDE
     Dosage: 25 MG, 2X/DAY
     Route: 048
     Dates: start: 20141119, end: 20141123
  7. TAPENTA [Concomitant]
     Active Substance: TAPENTADOL HYDROCHLORIDE
     Dosage: 100 MG, 2X/DAY
     Route: 048
     Dates: start: 20141119, end: 20141203
  8. LYRICA [Suspect]
     Active Substance: PREGABALIN
     Dosage: 150 MG IN MORNING AND AT 225 MG IN EVENING, 2X/DAY
     Route: 048
     Dates: start: 20141127, end: 20141201

REACTIONS (10)
  - Anaemia [Unknown]
  - Blood triglycerides increased [Unknown]
  - Blood creatine phosphokinase increased [Unknown]
  - C-reactive protein increased [Unknown]
  - Blood glucose increased [Unknown]
  - Hepatitis fulminant [Fatal]
  - Disease progression [Unknown]
  - Drug ineffective for unapproved indication [Recovered/Resolved]
  - Blood lactate dehydrogenase increased [Not Recovered/Not Resolved]
  - Blood urea increased [Unknown]

NARRATIVE: CASE EVENT DATE: 20141113
